FAERS Safety Report 6377651-0 (Version None)
Quarter: 2009Q3

REPORT INFORMATION
  Report Type: 
  Country: None (occurrence: None)
  Receive Date: 20090925
  Receipt Date: 20090915
  Transmission Date: 20100115
  Serious: Yes (Other)
  Sender: FDA-Public Use
  Company Number: CHPA2009US18682

PATIENT
  Age: 68 Year
  Sex: Female
  Weight: 67.12 kg

DRUGS (2)
  1. PRIVATE LABEL (NCH) [Suspect]
     Indication: SMOKING CESSATION THERAPY
     Dosage: 14 MG, QD
     Route: 062
     Dates: start: 20070101, end: 20070101
  2. PRIVATE LABEL (NCH) [Suspect]
     Dosage: 21 MG, QD
     Route: 062
     Dates: start: 20070101, end: 20070101

REACTIONS (5)
  - ASTHENIA [None]
  - ATRIOVENTRICULAR BLOCK [None]
  - CEREBROVASCULAR ACCIDENT [None]
  - DYSKINESIA [None]
  - INAPPROPRIATE SCHEDULE OF DRUG ADMINISTRATION [None]
